FAERS Safety Report 20351416 (Version 1)
Quarter: 2022Q1

REPORT INFORMATION
  Report Type: Spontaneous
  Country: US (occurrence: None)
  Receive Date: 20220118
  Receipt Date: 20220118
  Transmission Date: 20220423
  Serious: Yes (Death, Hospitalization)
  Sender: FDA-Public Use
  Company Number: None

PATIENT
  Age: 65 Year
  Sex: Female
  Weight: 55.1 kg

DRUGS (1)
  1. ABECMA [Suspect]
     Active Substance: IDECABTAGENE VICLEUCEL
     Indication: Plasma cell myeloma
     Dosage: FREQUENCY : ONCE;?
     Route: 042
     Dates: start: 20211218, end: 20211218

REACTIONS (8)
  - Cytokine release syndrome [None]
  - Immune effector cell-associated neurotoxicity syndrome [None]
  - Klebsiella bacteraemia [None]
  - Haemophagocytic lymphohistiocytosis [None]
  - Cerebrovascular accident [None]
  - Sepsis [None]
  - Hypotension [None]
  - Cardiac arrest [None]

NARRATIVE: CASE EVENT DATE: 20220109
